FAERS Safety Report 7673686-6 (Version None)
Quarter: 2011Q3

REPORT INFORMATION
  Report Type: 
  Country: None (occurrence: None)
  Receive Date: 20110810
  Receipt Date: 20110726
  Transmission Date: 20111222
  Serious: Yes (Other)
  Sender: FDA-Public Use
  Company Number: IT-TYCO HEALTHCARE/MALLINCKRODT-T201101472

PATIENT
  Age: 49 Year
  Sex: Male

DRUGS (3)
  1. ALCOHOL [Suspect]
     Route: 048
  2. BENZODIAZEPINE DERIVATIVES [Suspect]
     Route: 048
  3. METHADOSE [Suspect]
     Route: 042

REACTIONS (6)
  - INCORRECT ROUTE OF DRUG ADMINISTRATION [None]
  - COMA [None]
  - RESPIRATORY FAILURE [None]
  - LEUKOENCEPHALOPATHY [None]
  - SUICIDE ATTEMPT [None]
  - UNRESPONSIVE TO STIMULI [None]
